FAERS Safety Report 11622645 (Version 1)
Quarter: 2015Q4

REPORT INFORMATION
  Report Type: Spontaneous
  Country: US (occurrence: None)
  Receive Date: 20151009
  Receipt Date: 20151009
  Transmission Date: 20160304
  Serious: No
  Sender: FDA-Public Use
  Company Number: None

PATIENT
  Age: 32 Year
  Sex: Female
  Weight: 81.65 kg

DRUGS (4)
  1. PRE-NATAL VITAMIN [Concomitant]
  2. IRON SUPPLEMENT [Concomitant]
     Active Substance: IRON
  3. AMOXICILLIN 500 MG [Suspect]
     Active Substance: AMOXICILLIN
     Indication: TOOTH INFECTION
     Dosage: 1 PILL
     Route: 048
     Dates: start: 20151005, end: 20151008
  4. ACETAMINOPHEN. [Concomitant]
     Active Substance: ACETAMINOPHEN

REACTIONS (2)
  - Rash [None]
  - Maternal exposure timing unspecified [None]

NARRATIVE: CASE EVENT DATE: 20151008
